FAERS Safety Report 8211770-9 (Version None)
Quarter: 2012Q1

REPORT INFORMATION
  Report Type: 
  Country: None (occurrence: None)
  Receive Date: 20120315
  Receipt Date: 20120312
  Transmission Date: 20120608
  Serious: Yes (Hospitalization, Other)
  Sender: FDA-Public Use
  Company Number: JP-PFIZER INC-2012042630

PATIENT

DRUGS (3)
  1. CLINDAMYCIN HCL [Suspect]
  2. ZOSYN [Interacting]
  3. MEROPENEM [Interacting]

REACTIONS (3)
  - INTERSTITIAL LUNG DISEASE [None]
  - HEPATIC FUNCTION ABNORMAL [None]
  - DRUG INTERACTION [None]
